FAERS Safety Report 18448339 (Version 1)
Quarter: 2020Q4

REPORT INFORMATION
  Report Type: Spontaneous
  Country: US (occurrence: US)
  Receive Date: 20201101
  Receipt Date: 20201101
  Transmission Date: 20210114
  Serious: Yes (Other)
  Sender: FDA-Public Use
  Company Number: US-NAPPMUNDI-USA-2020-0155144

PATIENT
  Sex: Male

DRUGS (2)
  1. OXYCONTIN [Suspect]
     Active Substance: OXYCODONE HYDROCHLORIDE
     Indication: PRODUCT USED FOR UNKNOWN INDICATION
     Route: 048
  2. HYDROCODONE BITARTRATE AND ACETAMINOPHEN [Suspect]
     Active Substance: ACETAMINOPHEN\HYDROCODONE BITARTRATE
     Indication: PRODUCT USED FOR UNKNOWN INDICATION
     Route: 048

REACTIONS (11)
  - Unevaluable event [Unknown]
  - Abnormal behaviour [Unknown]
  - Developmental delay [Unknown]
  - Vomiting [Unknown]
  - Drug tolerance [Unknown]
  - Nausea [Unknown]
  - Constipation [Unknown]
  - Drug dependence [Unknown]
  - Respiratory depression [Unknown]
  - Sedation [Unknown]
  - Dizziness [Unknown]
